FAERS Safety Report 5764597-1 (Version None)
Quarter: 2008Q2

REPORT INFORMATION
  Report Type: 
  Country: None (occurrence: None)
  Receive Date: 20080611
  Receipt Date: 20080401
  Transmission Date: 20081010
  Serious: No
  Sender: FDA-Public Use
  Company Number: US-BAYER-200819011NA

PATIENT
  Age: 40 Year
  Sex: Male

DRUGS (1)
  1. AVELOX [Suspect]
     Indication: BRONCHITIS
     Dosage: TOTAL DAILY DOSE: 400 MG  UNIT DOSE: 400 MG
     Route: 048
     Dates: start: 20080229, end: 20080305

REACTIONS (7)
  - DIARRHOEA [None]
  - MUSCLE SPASMS [None]
  - MUSCLE TIGHTNESS [None]
  - NEPHROLITHIASIS [None]
  - PRURITUS [None]
  - TESTICULAR PAIN [None]
  - URETHRAL PAIN [None]
